FAERS Safety Report 8545908-0 (Version None)
Quarter: 2012Q3

REPORT INFORMATION
  Report Type: 
  Country: None (occurrence: None)
  Receive Date: 20120727
  Receipt Date: 20111121
  Transmission Date: 20120928
  Serious: No
  Sender: FDA-Public Use
  Company Number: US-ASTRAZENECA-2011SE70599

PATIENT
  Sex: Male

DRUGS (2)
  1. NORPRAMIN [Suspect]
     Indication: DEPRESSION
     Dates: start: 20111028
  2. SEROQUEL [Suspect]
     Route: 048
     Dates: start: 20111028

REACTIONS (1)
  - FEELING ABNORMAL [None]
